FAERS Safety Report 6229080-8 (Version None)
Quarter: 2009Q2

REPORT INFORMATION
  Report Type: 
  Country: None (occurrence: None)
  Receive Date: 20090615
  Receipt Date: 20090609
  Transmission Date: 20091009
  Serious: Yes (Hospitalization)
  Sender: FDA-Public Use
  Company Number: US-BIOGENIDEC-2009BI015183

PATIENT
  Age: 50 Year
  Sex: Male

DRUGS (2)
  1. TYSABRI [Suspect]
     Indication: MULTIPLE SCLEROSIS
     Route: 042
     Dates: start: 20080510, end: 20090101
  2. TYSABRI [Suspect]
     Route: 042
     Dates: start: 20090508

REACTIONS (5)
  - CELLULITIS [None]
  - FATIGUE [None]
  - OEDEMA PERIPHERAL [None]
  - SKIN ULCER [None]
  - URINARY TRACT INFECTION [None]
